FAERS Safety Report 7929633-2 (Version None)
Quarter: 2011Q4

REPORT INFORMATION
  Report Type: 
  Country: None (occurrence: None)
  Receive Date: 20111121
  Receipt Date: 20110819
  Transmission Date: 20120403
  Serious: Yes (Hospitalization, Other)
  Sender: FDA-Public Use
  Company Number: US-JNJCP-30000068332

PATIENT
  Age: 15 Year
  Sex: Female
  Weight: 52 kg

DRUGS (4)
  1. NONE [Concomitant]
  2. NTG SKIN ID ANTI ACNE TREATMENT USA NTSIAAUS [Suspect]
     Indication: ACNE
     Dosage: AS DIRECTED, TWICE PER DAY
     Route: 061
     Dates: start: 20110615, end: 20110808
  3. NTG SKIN ID (72) HYDRATOR USA NTSIHYUS [Suspect]
     Indication: ACNE
     Dosage: AS DIRECTED, TWICE DAILY
     Route: 061
     Dates: start: 20110615, end: 20110808
  4. NTG SKIN ID CREAM CLEANSER USA NTSICCUS [Suspect]
     Indication: ACNE
     Dosage: AS DIRECTED, TWICE PER DAY
     Route: 061
     Dates: start: 20110615, end: 20110808

REACTIONS (2)
  - CELLULITIS STAPHYLOCOCCAL [None]
  - STAPHYLOCOCCAL ABSCESS [None]
